FAERS Safety Report 8299719-4 (Version None)
Quarter: 2012Q2

REPORT INFORMATION
  Report Type: 
  Country: None (occurrence: None)
  Receive Date: 20120419
  Receipt Date: 20120409
  Transmission Date: 20120825
  Serious: No
  Sender: FDA-Public Use
  Company Number: US-B.I. PHARMACEUTICALS,INC./RIDGEFIELD-2012-BP-06599BP

PATIENT
  Age: 88 Year
  Sex: Female

DRUGS (7)
  1. MOBIC [Suspect]
     Indication: BACK PAIN
     Dosage: 7.5 MG
     Route: 048
     Dates: start: 20120406
  2. AMBIEN CR [Concomitant]
     Indication: INSOMNIA
     Dosage: 6.25 MG
     Route: 048
  3. MIDODRINE HYDROCHLORIDE [Concomitant]
     Indication: ORTHOSTATIC HYPOTENSION
     Dosage: 10 MG
     Route: 048
  4. XANAX [Concomitant]
     Indication: ANXIETY
     Dosage: 0.25 MG
     Route: 048
  5. LEXAPRO [Concomitant]
     Indication: DEPRESSION
  6. RISPERIDONE [Concomitant]
     Indication: ANXIETY
     Dosage: 0.5 MG
     Route: 048
     Dates: start: 20120224
  7. LEXAPRO [Concomitant]
     Indication: ANXIETY
     Route: 048

REACTIONS (2)
  - ASTHENIA [None]
  - DIZZINESS [None]
